FAERS Safety Report 24767675 (Version 1)
Quarter: 2024Q4

REPORT INFORMATION
  Report Type: Spontaneous
  Country: JP (occurrence: JP)
  Receive Date: 20241223
  Receipt Date: 20241223
  Transmission Date: 20250114
  Serious: Yes (Hospitalization, Disabling, Other)
  Sender: MERCK
  Company Number: JP-MSD-M2024-53505

PATIENT
  Age: 6 Decade
  Sex: Female

DRUGS (1)
  1. KEYTRUDA [Suspect]
     Active Substance: PEMBROLIZUMAB
     Dosage: 200 MILLIGRAM, Q3W
     Route: 041

REACTIONS (3)
  - Extremity necrosis [Unknown]
  - Febrile neutropenia [Unknown]
  - Infection [Unknown]
